FAERS Safety Report 9447949 (Version 1)
Quarter: 2013Q3

REPORT INFORMATION
  Report Type: Report from Study
  Country: IN (occurrence: IN)
  Receive Date: 20130808
  Receipt Date: 20130808
  Transmission Date: 20140515
  Serious: No
  Sender: FDA-Public Use
  Company Number: PHHY2013IN085168

PATIENT
  Sex: Female

DRUGS (5)
  1. TASIGNA [Suspect]
     Indication: CHRONIC MYELOID LEUKAEMIA
     Dosage: 800 MG, DAILY
     Route: 048
     Dates: start: 201306
  2. RANACID [Concomitant]
     Dosage: 500 MG, BID
     Route: 048
  3. METORAL [Concomitant]
     Dosage: 25 MG, BID
     Route: 048
  4. CARDACE [Concomitant]
     Dosage: 125 MG, BID
     Route: 048
  5. RABEPRAZOLE [Concomitant]
     Route: 048

REACTIONS (1)
  - Total lung capacity increased [Recovering/Resolving]
